FAERS Safety Report 10218737 (Version 2)
Quarter: 2014Q2

REPORT INFORMATION
  Report Type: Report from Study
  Country: IT (occurrence: IT)
  Receive Date: 20140605
  Receipt Date: 20140605
  Transmission Date: 20141212
  Serious: Yes (Death, Other)
  Sender: FDA-Public Use
  Company Number: PHHY2012IT037640

PATIENT
  Age: 62 Year
  Sex: Male
  Weight: 92 kg

DRUGS (3)
  1. CERTICAN [Suspect]
     Indication: HEART TRANSPLANT
     Dosage: 0.75 UKN, UNK
     Route: 048
     Dates: start: 20071217, end: 20090406
  2. CERTICAN [Suspect]
     Dosage: UNK
     Dates: start: 201010
  3. NEORAL [Concomitant]
     Indication: HEART TRANSPLANT
     Dosage: 170 UKN, UNK
     Dates: start: 20071217, end: 201010

REACTIONS (4)
  - Skin cancer [Fatal]
  - Neoplasm malignant [Fatal]
  - Ear neoplasm [Unknown]
  - Oedema peripheral [Unknown]
